FAERS Safety Report 4988706-7 (Version None)
Quarter: 2006Q2

REPORT INFORMATION
  Report Type: 
  Country: None (occurrence: None)
  Receive Date: 20060502
  Receipt Date: 20060310
  Transmission Date: 20061013
  Serious: Yes (Hospitalization, Other)
  Sender: FDA-Public Use
  Company Number: JP-ABBOTT-06P-087-0327548-00

PATIENT
  Sex: Male

DRUGS (11)
  1. CEFZON [Suspect]
     Indication: INFLAMMATION
     Route: 048
     Dates: start: 20060225, end: 20060227
  2. VASOLAN [Suspect]
     Indication: ACUTE MYOCARDIAL INFARCTION
     Route: 048
     Dates: start: 20060209, end: 20060227
  3. TAKEPRON CAPSULES [Suspect]
     Indication: DRUG USE FOR UNKNOWN INDICATION
     Route: 048
     Dates: start: 20060220, end: 20060227
  4. WARFARIN POTASSIUM [Suspect]
     Indication: ACUTE MYOCARDIAL INFARCTION
     Route: 048
     Dates: start: 20060220, end: 20060227
  5. WARFARIN POTASSIUM [Suspect]
     Indication: ANTICOAGULANT THERAPY
  6. BERAPROST SODIUM [Suspect]
     Indication: ARTERIOSCLEROSIS OBLITERANS
     Route: 048
     Dates: start: 20060220, end: 20060227
  7. ACETYLSALICYLIC ACID SRT [Suspect]
     Indication: ACUTE MYOCARDIAL INFARCTION
     Route: 048
     Dates: start: 20060129, end: 20060227
  8. TICLOPIDINE HYDROCHLORIDE [Suspect]
     Indication: ACUTE MYOCARDIAL INFARCTION
     Route: 048
     Dates: start: 20060130, end: 20060227
  9. IMIDAPRIL HYDROCHLORIDE [Suspect]
     Indication: HYPERTENSION
     Route: 048
     Dates: start: 20060221, end: 20060227
  10. HEPARIN [Concomitant]
     Indication: DIALYSIS
  11. CATECHOLAMINE [Concomitant]
     Indication: DRUG USE FOR UNKNOWN INDICATION
     Dates: start: 20060127

REACTIONS (4)
  - ERYTHEMA [None]
  - STEVENS-JOHNSON SYNDROME [None]
  - SWELLING FACE [None]
  - TOXIC EPIDERMAL NECROLYSIS [None]
